FAERS Safety Report 22181906 (Version 1)
Quarter: 2023Q2

REPORT INFORMATION
  Report Type: Spontaneous
  Country: US (occurrence: US)
  Receive Date: 20230406
  Receipt Date: 20230406
  Transmission Date: 20230722
  Serious: No
  Sender: FDA-Public Use
  Company Number: US-TEVA-2023-US-2870084

PATIENT
  Age: 86 Year
  Sex: Female

DRUGS (3)
  1. CEPHALEXIN [Suspect]
     Active Substance: CEPHALEXIN
     Indication: Urinary tract infection
     Dosage: 2000 MILLIGRAM DAILY; 500 MG
     Dates: start: 202303
  2. WARFARIN [Suspect]
     Active Substance: WARFARIN
     Indication: Product used for unknown indication
     Dosage: 2.5 MG, 2.5 MG AND 5 MG TWO DAYS A WEEK AND 5 MG THE REST OF THE WEEK
  3. WARFARIN [Suspect]
     Active Substance: WARFARIN
     Dosage: 5 MG

REACTIONS (4)
  - Drug hypersensitivity [Unknown]
  - Illness [Unknown]
  - Heart rate increased [Unknown]
  - Dyspnoea [Unknown]

NARRATIVE: CASE EVENT DATE: 20230301
